FAERS Safety Report 9705992 (Version 1)
Quarter: 2013Q4

REPORT INFORMATION
  Report Type: Spontaneous
  Country: GB (occurrence: IE)
  Receive Date: 20131122
  Receipt Date: 20131122
  Transmission Date: 20140711
  Serious: Yes (Other)
  Sender: FDA-Public Use
  Company Number: IE-B.I. PHARMACEUTICALS,INC./RIDGEFIELD-2013-BI-38332UK

PATIENT
  Age: 40 Year
  Sex: Female

DRUGS (1)
  1. AFATINIB [Suspect]

REACTIONS (1)
  - Malignant neoplasm progression [Unknown]
